FAERS Safety Report 6313922-1 (Version None)
Quarter: 2009Q3

REPORT INFORMATION
  Report Type: 
  Country: None (occurrence: None)
  Receive Date: 20090818
  Receipt Date: 20090807
  Transmission Date: 20100115
  Serious: Yes (Life-Threatening)
  Sender: FDA-Public Use
  Company Number: PT-AMGEN-QUU359087

PATIENT
  Age: 26 Year
  Sex: Female

DRUGS (2)
  1. NEUPOGEN [Suspect]
     Indication: CHEMOTHERAPY
  2. UNSPECIFIED ANTINEOPLASTIC AGENT [Concomitant]

REACTIONS (5)
  - ANAPHYLACTIC REACTION [None]
  - DYSPNOEA [None]
  - LARYNGEAL OEDEMA [None]
  - PARAESTHESIA [None]
  - TACHYCARDIA [None]
